FAERS Safety Report 5035300-8 (Version None)
Quarter: 2006Q2

REPORT INFORMATION
  Report Type: 
  Country: None (occurrence: None)
  Receive Date: 20060519
  Receipt Date: 20060224
  Transmission Date: 20061013
  Serious: No
  Sender: FDA-Public Use
  Company Number: TPA2006A00336

PATIENT
  Age: 85 Year
  Sex: Female
  Weight: 54.4316 kg

DRUGS (7)
  1. ROZEREM [Suspect]
     Indication: SLEEP DISORDER
     Dosage: 8 MG, QHS, PER ORAL
     Route: 048
     Dates: start: 20060201
  2. PLAVIX [Concomitant]
  3. UNK HIGH BLOOD PRESSURE MEDICATION(ALL OTHER THERAPEUTIC PRODUCTS) [Concomitant]
  4. UNK VITAMIN(VITAMINS) [Concomitant]
  5. FISH OIL(FISH OIL) [Concomitant]
  6. PAXIL CR(PAROXETINE HYDROCHLORIDE) (12.5 MILLIGRAM) [Concomitant]
  7. UNK MEDICATIONS(ALL OTHER THERAPEUTIC PRODUCTS) [Concomitant]

REACTIONS (1)
  - CONFUSIONAL STATE [None]
